FAERS Safety Report 22341170 (Version 1)
Quarter: 2023Q2

REPORT INFORMATION
  Report Type: Spontaneous
  Country: US (occurrence: US)
  Receive Date: 20230518
  Receipt Date: 20230518
  Transmission Date: 20230721
  Serious: Yes (Other)
  Sender: FDA-Public Use
  Company Number: US-MYLANLABS-2023M1011298

PATIENT
  Age: 65 Year
  Sex: Female

DRUGS (7)
  1. GABAPENTIN [Suspect]
     Active Substance: GABAPENTIN
     Indication: Rash pruritic
     Dosage: UNK
     Route: 065
  2. SULFASALAZINE [Suspect]
     Active Substance: SULFASALAZINE
     Indication: Spondyloarthropathy
     Dosage: UNK
     Route: 065
  3. CETIRIZINE [Suspect]
     Active Substance: CETIRIZINE HYDROCHLORIDE
     Indication: Rash pruritic
     Dosage: UNK
  4. TRIAMCINOLONE [Suspect]
     Active Substance: TRIAMCINOLONE
     Indication: Rash pruritic
     Dosage: UNK
     Route: 061
  5. FLUOCINONIDE [Suspect]
     Active Substance: FLUOCINONIDE
     Indication: Rash pruritic
     Dosage: UNK
     Route: 061
  6. IVERMECTIN [Suspect]
     Active Substance: IVERMECTIN
     Indication: Rash pruritic
     Dosage: RECEIVED 1 DOSE
     Route: 065
  7. ADALIMUMAB [Concomitant]
     Active Substance: ADALIMUMAB
     Indication: Spondyloarthropathy
     Dosage: UNK
     Route: 065

REACTIONS (2)
  - Pemphigoid [Recovered/Resolved]
  - Treatment failure [Unknown]
